FAERS Safety Report 4700012-4 (Version None)
Quarter: 2005Q2

REPORT INFORMATION
  Report Type: 
  Country: None (occurrence: None)
  Receive Date: 20050627
  Receipt Date: 20030319
  Transmission Date: 20051028
  Serious: Yes (Death, Other)
  Sender: FDA-Public Use
  Company Number: PHHO2003CA03752

PATIENT
  Age: 47 Year
  Sex: Male

DRUGS (2)
  1. LORAZEPAM [Concomitant]
  2. CLOZARIL [Suspect]
     Dosage: 600 MG, QD
     Route: 048
     Dates: start: 19941213

REACTIONS (3)
  - AXILLARY MASS [None]
  - DEATH [None]
  - LYMPHOMA [None]
